FAERS Safety Report 10956553 (Version 1)
Quarter: 2015Q1

REPORT INFORMATION
  Report Type: Spontaneous
  Country: FR (occurrence: FR)
  Receive Date: 20150326
  Receipt Date: 20150326
  Transmission Date: 20150721
  Serious: Yes (Hospitalization, Other)
  Sender: FDA-Public Use
  Company Number: FR-AMGEN-FRASP2015004652

PATIENT
  Age: 83 Year
  Sex: Male

DRUGS (16)
  1. RAMIPRIL. [Concomitant]
     Active Substance: RAMIPRIL
     Indication: HYPERTENSION
     Dosage: 2 MG, BID
     Route: 048
     Dates: start: 20141213
  2. KARDEGIC [Concomitant]
     Active Substance: ASPIRIN LYSINE
     Dosage: 75 UNITS, QD
  3. 1-ALPHA [Concomitant]
     Active Substance: ALFACALCIDOL
  4. CALCIPRAT D3 [Concomitant]
     Dosage: 3000/800 UNITS, QD
  5. TRANSIPEG                          /00754501/ [Concomitant]
     Active Substance: POLYETHYLENE GLYCOL 3350
     Dosage: 5.9 UNITS, BID
  6. ARANESP [Suspect]
     Active Substance: DARBEPOETIN ALFA
     Indication: PRODUCT USED FOR UNKNOWN INDICATION
     Dosage: 60 MUG, QWK
     Route: 058
     Dates: start: 20141230, end: 20150105
  7. TRANSIPEG                          /00754501/ [Concomitant]
     Active Substance: POLYETHYLENE GLYCOL 3350
     Indication: CONSTIPATION
     Dosage: 2 UNITS, AS NECESSARY
     Route: 048
     Dates: start: 201502
  8. EUPRESSYL                          /00631801/ [Concomitant]
     Active Substance: URAPIDIL
     Dosage: UNK
  9. IMOVANE [Concomitant]
     Active Substance: ZOPICLONE
  10. PROTEINS [Concomitant]
     Dosage: UNK, Q16H
  11. RENAGEL [Suspect]
     Active Substance: SEVELAMER HYDROCHLORIDE
     Indication: PRODUCT USED FOR UNKNOWN INDICATION
     Route: 065
  12. PRIMPERAN [Concomitant]
     Active Substance: METOCLOPRAMIDE HYDROCHLORIDE
     Indication: NAUSEA
     Dosage: 3 TABLETS, TID
     Route: 048
     Dates: start: 20141108, end: 20151212
  13. HYPERIUM [Concomitant]
     Active Substance: RILMENIDINE PHOSPHATE
     Dosage: UNK
  14. CALCIDOSE                          /00944201/ [Concomitant]
     Dosage: UNK
  15. LASILIX                            /00032601/ [Concomitant]
     Active Substance: FUROSEMIDE
     Dosage: UNK
  16. INEXIUM                            /01479302/ [Concomitant]
     Active Substance: ESOMEPRAZOLE MAGNESIUM
     Dosage: 40 UNITS, QD

REACTIONS (10)
  - Urticaria [Recovered/Resolved]
  - Weight decreased [Unknown]
  - Hypersensitivity [Recovered/Resolved]
  - Bronchitis [Unknown]
  - Decreased appetite [Unknown]
  - Rash [Recovered/Resolved]
  - Hypertension [Recovered/Resolved]
  - Erythema [Recovered/Resolved]
  - Inflammation [Recovering/Resolving]
  - Azotaemia [Recovered/Resolved]

NARRATIVE: CASE EVENT DATE: 201412
